FAERS Safety Report 9553173 (Version 1)
Quarter: 2013Q3

REPORT INFORMATION
  Report Type: Spontaneous
  Country: US (occurrence: None)
  Receive Date: 20130913
  Receipt Date: 20130913
  Transmission Date: 20140515
  Serious: Yes (Other)
  Sender: FDA-Public Use
  Company Number: 2012032694

PATIENT
  Age: 73 Year
  Sex: Male
  Weight: 89.36 kg

DRUGS (33)
  1. HIZENTRA [Suspect]
     Indication: IMMUNODEFICIENCY COMMON VARIABLE
     Dosage: 1X/WEEK, 3 SITES OVER 1-2HOURS SUBCUTANEOUS), (9 G 1X/WEEK, 3 SITES OVER 1-2 HOURS SUBCUTANEOUS), (9 G 1X/WEEK, 1 GM ON THREE SITES SUBCUTANEOUS), (9 G 1X/WEEK, 4GM ON THREE SITES SUBCUTANEOUS), (9 G 1X/WEEK, 1-6 SITES OVER 1-2 HOURS SUBCUTANEOUS)
  2. DIPHENHYDRAMINE (DIPHENHYDRAMINE) [Concomitant]
  3. LIDOCAINE / PRILOCAINE (EMLA /00675501/) [Concomitant]
  4. EPI-PEN (EPINEPHRINE) [Concomitant]
  5. GLIPIZIDE (GLIPIZIDE) [Concomitant]
  6. FISH OIL (FISH OIL) [Concomitant]
  7. NITROGLYCERIN (GLYCERYL TRINITRATE) [Concomitant]
  8. VITAMIN C [Concomitant]
  9. POTASSIUM (POTASSIUM) [Concomitant]
  10. CALCIUM +D3 (CALCIUM D3) [Concomitant]
  11. SAW PALMETTO (SERENOA REPENS) [Concomitant]
  12. OXYGEN (OXYGEN) [Concomitant]
  13. PROTONIX (PANTOPRAZOLE) [Concomitant]
  14. LASIX (FUROSEMIDE) [Concomitant]
  15. NORVASC (AMLODIPINE) [Concomitant]
  16. LIPITOR (ATORVASTATIN CALCIUM) [Concomitant]
  17. GLUCOPHAGE (METFORMIN) [Concomitant]
  18. BUDESONIDE (BUDESONIDE) [Concomitant]
  19. LISINOPRIL (LISINOPRIL) [Concomitant]
  20. FLONASE (FLUTICASONE PROPIONATE) [Concomitant]
  21. TRAZODONE (TRAZODONE) [Concomitant]
  22. ASPIRIN (ACETYLSALICYLIC ACID) [Concomitant]
  23. ACETAMINOPHEN (PARACETAMOL) [Concomitant]
  24. FLOMAX (TAMSULOSIN HYDROCHLORIDE) [Concomitant]
  25. MUCINEX ER (GUAIFENESIN) [Concomitant]
  26. ATIVAN (LORAZEPAM) [Concomitant]
  27. THEO-24 ER (THEOPHYLLINE) [Concomitant]
  28. BROVANA (BETA BLOCKING AGENTS) [Concomitant]
  29. STEROIDS (CORTICOSTEROIDS) [Concomitant]
  30. PULMICORT (BUDESONIDE) [Concomitant]
  31. PREDNISONE (PREDNISONE) [Concomitant]
  32. ISOSORBIDE MN (ISOSORBIDE MONONITRATE) [Concomitant]
  33. BIOTIN (BIOTIN) [Concomitant]

REACTIONS (5)
  - Weight increased [None]
  - Dizziness [None]
  - Vision blurred [None]
  - Alopecia [None]
  - Dyspnoea [None]
